FAERS Safety Report 26146710 (Version 1)
Quarter: 2025Q4

REPORT INFORMATION
  Report Type: Spontaneous
  Country: EG (occurrence: EG)
  Receive Date: 20251211
  Receipt Date: 20251211
  Transmission Date: 20260119
  Serious: Yes (Hospitalization)
  Sender: PFIZER
  Company Number: EG-PFIZER INC-PV202500140836

PATIENT
  Age: 57 Year
  Sex: Female
  Weight: 92 kg

DRUGS (4)
  1. ELRANATAMAB [Suspect]
     Active Substance: ELRANATAMAB
     Dosage: 76 MG, WEEKLY
     Route: 058
     Dates: start: 20251105
  2. SEPTRIN D.S. [Concomitant]
     Indication: Prophylaxis
     Dosage: 1 DF, 2X/DAY, FOR 3 DAYS / WEEK
  3. ZOVIRAX [Concomitant]
     Active Substance: ACYCLOVIR
     Indication: Prophylaxis
     Dosage: 1 DF, 2X/DAY
  4. LEVOFLOXACIN [Concomitant]
     Active Substance: LEVOFLOXACIN
     Indication: Prophylaxis
     Dosage: 1 DF, 1X/DAY

REACTIONS (1)
  - COVID-19 [Recovered/Resolved]

NARRATIVE: CASE EVENT DATE: 20251123
